FAERS Safety Report 7894186-4 (Version None)
Quarter: 2011Q4

REPORT INFORMATION
  Report Type: 
  Country: None (occurrence: None)
  Receive Date: 20111104
  Receipt Date: 20111027
  Transmission Date: 20120403
  Serious: Yes (Hospitalization, Other)
  Sender: FDA-Public Use
  Company Number: US-ELI_LILLY_AND_COMPANY-US201110008249

PATIENT
  Sex: Female

DRUGS (3)
  1. HUMALOG [Suspect]
     Indication: DIABETES MELLITUS
     Dosage: 25 U, TID
     Dates: start: 20030101
  2. SYNTHROID [Concomitant]
     Dosage: UNK
  3. LANTUS [Concomitant]
     Dosage: UNK, EACH EVENING

REACTIONS (17)
  - STAPHYLOCOCCAL SKIN INFECTION [None]
  - DIABETES MELLITUS INADEQUATE CONTROL [None]
  - PRODUCT QUALITY ISSUE [None]
  - MYOCARDIAL INFARCTION [None]
  - BLINDNESS [None]
  - GANGRENE [None]
  - DRUG INEFFECTIVE [None]
  - ESCHERICHIA INFECTION [None]
  - DIABETIC COMPLICATION [None]
  - PYREXIA [None]
  - ESCHERICHIA SEPSIS [None]
  - INFECTION [None]
  - RENAL FAILURE [None]
  - BLOOD GLUCOSE INCREASED [None]
  - TOE AMPUTATION [None]
  - HYPOAESTHESIA [None]
  - BLINDNESS UNILATERAL [None]
